FAERS Safety Report 9633964 (Version 1)
Quarter: 2013Q4

REPORT INFORMATION
  Report Type: Report from Study
  Country: JP (occurrence: JP)
  Receive Date: 20131021
  Receipt Date: 20131021
  Transmission Date: 20140711
  Serious: Yes (Life-Threatening, Hospitalization, Other)
  Sender: FDA-Public Use
  Company Number: JP-PFIZER INC-2013297114

PATIENT
  Age: 35 Year
  Sex: Female

DRUGS (27)
  1. ADRIACIN [Suspect]
     Indication: ACUTE LYMPHOCYTIC LEUKAEMIA
     Dosage: 60 MG, 1X/DAY
     Route: 042
     Dates: start: 20100627, end: 20100627
  2. SPRYCEL [Suspect]
     Indication: ACUTE LYMPHOCYTIC LEUKAEMIA
     Dosage: (PH+ALL) TABS, 70 MG, 2/1 DAY
     Route: 048
     Dates: start: 20090728, end: 20090902
  3. SPRYCEL [Suspect]
     Dosage: UNK
     Dates: start: 20090908, end: 20091126
  4. SPRYCEL [Suspect]
     Dosage: UNK
     Dates: start: 20100622, end: 20100704
  5. ENDOXAN [Suspect]
     Indication: ACUTE LYMPHOCYTIC LEUKAEMIA
     Dosage: 740 MG, UNK
     Route: 042
     Dates: start: 20091208, end: 20100626
  6. ONCOVIN [Suspect]
     Indication: ACUTE LYMPHOCYTIC LEUKAEMIA
     Dosage: 2 MG, 1X/DAY
     Route: 042
     Dates: start: 20100627, end: 20100627
  7. OMEPRAL [Concomitant]
     Dosage: UNK
     Dates: end: 20100811
  8. VALTREX [Concomitant]
     Dosage: UNK
  9. DIFLUCAN [Concomitant]
     Dosage: UNK %, UNK
     Route: 042
  10. BAKTAR [Concomitant]
  11. MUCODYNE [Concomitant]
  12. DEPAS [Concomitant]
  13. PRIMPERAN [Concomitant]
  14. VFEND [Concomitant]
     Dosage: UNK
     Dates: start: 20100113
  15. URSO [Concomitant]
     Dosage: UNK
     Dates: start: 20091204
  16. PROGRAF [Concomitant]
     Dosage: UNK
     Dates: start: 20100116, end: 20100628
  17. BIOFERMIN [Concomitant]
     Dosage: UNK
     Dates: start: 20100310
  18. PENTCILLIN [Concomitant]
     Dosage: UNK
     Dates: start: 20100624, end: 20100701
  19. STRONGER NEO-MINOPHAGEN C [Concomitant]
     Dosage: UNK
     Dates: start: 20100625, end: 20100811
  20. KYTRIL [Concomitant]
     Dosage: UNK
     Dates: start: 20100624, end: 20100628
  21. CALCIUM GLUCONATE [Concomitant]
     Dosage: UNK
     Dates: start: 20100628, end: 20100702
  22. FRAGMIN [Concomitant]
     Dosage: UNK
     Dates: start: 20100628, end: 20100704
  23. ATARAX-P [Concomitant]
     Dosage: UNK
     Dates: start: 20100629, end: 20100629
  24. MEYLON [Concomitant]
     Dosage: UNK
     Dates: start: 20100622, end: 20100706
  25. DECADRON [Concomitant]
     Dosage: UNK
     Dates: start: 20100624, end: 20100627
  26. LASIX [Concomitant]
     Indication: PROPHYLAXIS
     Dosage: UNK
     Dates: start: 20100625, end: 20100626
  27. BUSULFEX [Concomitant]
     Dosage: UNK
     Dates: start: 20091204, end: 20091208

REACTIONS (8)
  - White blood cell count decreased [Recovered/Resolved]
  - Neutrophil count decreased [Recovered/Resolved]
  - Platelet count decreased [Unknown]
  - Pulmonary haemorrhage [Recovering/Resolving]
  - Infection [Recovered/Resolved]
  - Anaemia [Unknown]
  - Pleural effusion [Recovering/Resolving]
  - Unrelated donor bone marrow transplantation therapy [Unknown]
